FAERS Safety Report 16759086 (Version 1)
Quarter: 2019Q4

REPORT INFORMATION
  Report Type: Spontaneous
  Country: US (occurrence: US)
  Receive Date: 20190829
  Receipt Date: 20190829
  Transmission Date: 20200122
  Serious: No
  Sender: FDA-Public Use
  Company Number: None

PATIENT
  Age: 41 Year
  Sex: Female
  Weight: 67.5 kg

DRUGS (1)
  1. DEXMETHYLPHENIDATE ER 30 MG CP GENERIC FOR FOCALIN [Suspect]
     Active Substance: DEXMETHYLPHENIDATE HYDROCHLORIDE
     Indication: ATTENTION DEFICIT/HYPERACTIVITY DISORDER
     Dosage: ?          QUANTITY:1 CAPSULE(S);?
     Route: 048
     Dates: start: 20190806

REACTIONS (7)
  - Logorrhoea [None]
  - Poverty of speech [None]
  - Product physical consistency issue [None]
  - Product substitution issue [None]
  - Drug ineffective [None]
  - Distractibility [None]
  - Memory impairment [None]

NARRATIVE: CASE EVENT DATE: 20190829
